FAERS Safety Report 4379422-3 (Version None)
Quarter: 2004Q2

REPORT INFORMATION
  Report Type: 
  Country: None (occurrence: None)
  Receive Date: 20040617
  Receipt Date: 20040120
  Transmission Date: 20050107
  Serious: Yes (Hospitalization, Disabling)
  Sender: FDA-Public Use
  Company Number: PHBS2004JP01120

PATIENT
  Age: 32 Year
  Sex: Female

DRUGS (7)
  1. NEORAL [Suspect]
     Indication: SYSTEMIC LUPUS ERYTHEMATOSUS
     Dosage: 25 MG, BID
     Route: 048
     Dates: start: 20031217, end: 20040106
  2. NEORAL [Suspect]
     Dosage: 100 MG/D
     Route: 048
     Dates: start: 20040107, end: 20040109
  3. PREDNISOLONE [Concomitant]
     Dosage: 30 MG/D
     Route: 048
  4. CALSLOT [Concomitant]
     Dosage: 10 MG/D
     Route: 048
     Dates: start: 20031126, end: 20040109
  5. ZANTAC [Concomitant]
     Dosage: 150 MG/D
     Route: 048
     Dates: start: 20031126, end: 20040106
  6. FUNGIZONE [Concomitant]
     Dosage: 300 MG/D
     Route: 048
     Dates: start: 20031219, end: 20040109
  7. BREDININ [Concomitant]
     Dates: start: 20031001, end: 20031101

REACTIONS (18)
  - ABDOMINAL PAIN [None]
  - ANXIETY [None]
  - ASCITES [None]
  - BLOOD ALKALINE PHOSPHATASE INCREASED [None]
  - BLOOD AMYLASE INCREASED [None]
  - BLOOD LACTATE DEHYDROGENASE INCREASED [None]
  - BRAIN OEDEMA [None]
  - CONVULSION [None]
  - CYTOMEGALOVIRUS ANTIBODY POSITIVE [None]
  - DIARRHOEA [None]
  - GAMMA-GLUTAMYLTRANSFERASE INCREASED [None]
  - GAZE PALSY [None]
  - HEADACHE [None]
  - HEPATIC ENZYME INCREASED [None]
  - HYPERTENSIVE ENCEPHALOPATHY [None]
  - PANCREATITIS [None]
  - PROTHROMBIN TIME PROLONGED [None]
  - TOXIC INDUCED ENCEPHALOPATHY [None]
